FAERS Safety Report 24928424 (Version 1)
Quarter: 2025Q1

REPORT INFORMATION
  Report Type: Spontaneous
  Country: US (occurrence: US)
  Receive Date: 20250205
  Receipt Date: 20250205
  Transmission Date: 20250409
  Serious: Yes (Hospitalization)
  Sender: DOUGLAS PHARMACEUTICALS
  Company Number: US-DOUGLAS PHARMACEUTICALS AMERICA LIMITED-2025TSM00009

PATIENT
  Sex: Male

DRUGS (14)
  1. VERSACLOZ [Suspect]
     Active Substance: CLOZAPINE
  2. VERSACLOZ [Suspect]
     Active Substance: CLOZAPINE
     Dosage: 450 MG, 1X/DAY
  3. VERSACLOZ [Suspect]
     Active Substance: CLOZAPINE
     Dosage: 50 MG, 1X/DAY
  4. VERSACLOZ [Suspect]
     Active Substance: CLOZAPINE
     Dosage: 600 MG, 1X/DAY
  5. LORAZEPAM [Suspect]
     Active Substance: LORAZEPAM
     Route: 042
  6. LORAZEPAM [Suspect]
     Active Substance: LORAZEPAM
  7. LORAZEPAM [Suspect]
     Active Substance: LORAZEPAM
     Dosage: 16 MG, 1X/DAY
     Route: 048
  8. LORAZEPAM [Suspect]
     Active Substance: LORAZEPAM
  9. LORAZEPAM [Suspect]
     Active Substance: LORAZEPAM
  10. LORAZEPAM [Suspect]
     Active Substance: LORAZEPAM
     Dosage: UPTO 16 MG, 1X/DAY
     Route: 030
  11. LORAZEPAM [Suspect]
     Active Substance: LORAZEPAM
     Route: 048
  12. CLONAZEPAM [Suspect]
     Active Substance: CLONAZEPAM
     Indication: Catatonia
     Dosage: 2 MG, 1X/DAY
  13. CLONAZEPAM [Suspect]
     Active Substance: CLONAZEPAM
     Dosage: 6 MG, 1X/DAY
     Route: 048
  14. CLONAZEPAM [Suspect]
     Active Substance: CLONAZEPAM

REACTIONS (4)
  - Catatonia [Unknown]
  - Disease recurrence [Unknown]
  - Drug withdrawal syndrome [Unknown]
  - Drug tolerance [Unknown]
